FAERS Safety Report 20637870 (Version 1)
Quarter: 2022Q1

REPORT INFORMATION
  Report Type: Spontaneous
  Country: US (occurrence: None)
  Receive Date: 20220324
  Receipt Date: 20220324
  Transmission Date: 20220423
  Serious: Yes (Other)
  Sender: FDA-Public Use
  Company Number: None

PATIENT
  Age: 36 Year
  Sex: Female
  Weight: 86.18 kg

DRUGS (5)
  1. ATOMOXETINE [Suspect]
     Active Substance: ATOMOXETINE
  2. DEXTROAMPHET SACCHARAT, AMPHET ASPARTATE, DEXTROAMPHET SULFATE AND AMP [Suspect]
     Active Substance: AMPHETAMINE ASPARTATE\AMPHETAMINE SULFATE\DEXTROAMPHETAMINE SACCHARATE\DEXTROAMPHETAMINE SULFATE
  3. VENLAFAXINE HCL ER [Suspect]
     Active Substance: VENLAFAXINE HYDROCHLORIDE
  4. PEPCID [Suspect]
     Active Substance: FAMOTIDINE
  5. ARMOUR THYROID [Suspect]
     Active Substance: THYROID, PORCINE

REACTIONS (5)
  - Gestational diabetes [None]
  - Hypothyroidism [None]
  - Maternal exposure during pregnancy [None]
  - Foetal exposure during pregnancy [None]
  - Premature baby [None]

NARRATIVE: CASE EVENT DATE: 20201220
